FAERS Safety Report 6825541-9 (Version None)
Quarter: 2010Q3

REPORT INFORMATION
  Report Type: 
  Country: None (occurrence: None)
  Receive Date: 20100708
  Receipt Date: 20080710
  Transmission Date: 20110219
  Serious: Yes (Other)
  Sender: FDA-Public Use
  Company Number: US-PFIZER INC-2006111550

PATIENT
  Sex: Female
  Weight: 61.2 kg

DRUGS (9)
  1. CHANTIX [Suspect]
     Indication: EX-TOBACCO USER
     Dates: start: 20060815
  2. ZELNORM [Concomitant]
     Indication: INTESTINAL FUNCTIONAL DISORDER
  3. AMITRIPTYLINE [Concomitant]
     Indication: DEPRESSION
  4. SOMA [Concomitant]
  5. KETOPROFEN [Concomitant]
     Indication: ARTHRITIS
  6. LITHIUM CARBONATE [Concomitant]
     Indication: DEPRESSION
  7. NEXIUM [Concomitant]
     Indication: GASTRIC DISORDER
  8. MORPHINE [Concomitant]
     Route: 061
  9. KLONOPIN [Concomitant]

REACTIONS (7)
  - CHRONIC OBSTRUCTIVE PULMONARY DISEASE [None]
  - MEDICAL DEVICE IMPLANTATION [None]
  - NAUSEA [None]
  - PAIN [None]
  - RESPIRATORY FUME INHALATION DISORDER [None]
  - SENSORY DISTURBANCE [None]
  - VOMITING [None]
